FAERS Safety Report 8862850 (Version 1)
Quarter: 2012Q4

REPORT INFORMATION
  Report Type: Report from Study
  Country: DE (occurrence: DE)
  Receive Date: 20121026
  Receipt Date: 20121026
  Transmission Date: 20130627
  Serious: Yes (Hospitalization)
  Sender: FDA-Public Use
  Company Number: DE-GLAXOSMITHKLINE-B0800736B

PATIENT
  Age: 43 Year
  Sex: Female
  Weight: 73 kg

DRUGS (4)
  1. LAPATINIB [Suspect]
     Indication: BREAST CANCER
     Dosage: 500MG Per day
     Route: 048
     Dates: start: 20120412, end: 20120806
  2. TRASTUZUMAB [Suspect]
     Indication: BREAST CANCER
     Dosage: 6MGK Every 3 weeks
     Route: 042
     Dates: start: 20120412, end: 20120806
  3. PACLITAXEL [Suspect]
     Indication: BREAST CANCER
     Dosage: 80MGM2 Weekly
     Route: 042
     Dates: start: 20120412, end: 20120806
  4. MYOCET [Suspect]
     Indication: BREAST CANCER
     Dosage: 20MGM2 Weekly
     Route: 042
     Dates: start: 20120412, end: 20120808

REACTIONS (1)
  - Sepsis [Recovered/Resolved]
